FAERS Safety Report 22221390 (Version 7)
Quarter: 2023Q2

REPORT INFORMATION
  Report Type: Spontaneous
  Country: US (occurrence: US)
  Receive Date: 20230418
  Receipt Date: 20230523
  Transmission Date: 20230722
  Serious: No
  Sender: FDA-Public Use
  Company Number: US-BIOGEN-2023BI01199626

PATIENT
  Sex: Female

DRUGS (3)
  1. VUMERITY [Suspect]
     Active Substance: DIROXIMEL FUMARATE
     Indication: Multiple sclerosis
     Route: 050
     Dates: start: 20230405
  2. VUMERITY [Suspect]
     Active Substance: DIROXIMEL FUMARATE
     Route: 050
     Dates: end: 20230418
  3. VUMERITY [Suspect]
     Active Substance: DIROXIMEL FUMARATE
     Route: 050
     Dates: start: 20230405, end: 20230418

REACTIONS (13)
  - Underdose [Unknown]
  - Balance disorder [Not Recovered/Not Resolved]
  - Neuropathy peripheral [Unknown]
  - Gastric disorder [Unknown]
  - Migraine [Unknown]
  - Anxiety [Unknown]
  - Visual impairment [Unknown]
  - Aphasia [Unknown]
  - Cognitive disorder [Unknown]
  - Headache [Unknown]
  - Pain in extremity [Unknown]
  - Pruritus [Unknown]
  - Nausea [Unknown]
